FAERS Safety Report 6266707-9 (Version None)
Quarter: 2009Q3

REPORT INFORMATION
  Report Type: 
  Country: None (occurrence: None)
  Receive Date: 20090714
  Receipt Date: 20090707
  Transmission Date: 20100115
  Serious: Yes (Hospitalization, Other)
  Sender: FDA-Public Use
  Company Number: US-BIOGENIDEC-2008BI032863

PATIENT
  Sex: Female

DRUGS (14)
  1. TYSABRI [Suspect]
     Indication: MULTIPLE SCLEROSIS
     Route: 042
     Dates: start: 20080825
  2. ZANAFLEX [Concomitant]
  3. PROVIGIL [Concomitant]
     Route: 048
  4. ZONEGRAN [Concomitant]
  5. KEPPRA [Concomitant]
     Route: 048
  6. PHENOBARBITAL [Concomitant]
     Route: 048
  7. FIORICET [Concomitant]
  8. LIDODERM [Concomitant]
  9. FLECTOR [Concomitant]
  10. LEVOXYL [Concomitant]
     Route: 048
  11. VITAMIN D [Concomitant]
     Route: 048
  12. MOBIC [Concomitant]
     Route: 048
  13. DILAUDID [Concomitant]
     Route: 048
  14. DURAGESIC-100 [Concomitant]

REACTIONS (5)
  - CONVULSION [None]
  - FALL [None]
  - PAIN [None]
  - SOMNOLENCE [None]
  - SPONDYLOLISTHESIS [None]
